FAERS Safety Report 4966466-3 (Version None)
Quarter: 2006Q2

REPORT INFORMATION
  Report Type: 
  Country: None (occurrence: None)
  Receive Date: 20060407
  Receipt Date: 20051025
  Transmission Date: 20061013
  Serious: Yes (Other)
  Sender: FDA-Public Use
  Company Number: PHNU2005DE03554

PATIENT
  Sex: Female
  Weight: 59 kg

DRUGS (3)
  1. BISOPROLOL [Concomitant]
     Dosage: 5 MG, QD
     Route: 048
  2. L-THYROXIN [Concomitant]
     Dosage: 75 UG, QD
     Route: 048
  3. ZOMETA [Suspect]
     Indication: MULTIPLE MYELOMA
     Dosage: 4 MG, QMO
     Route: 042
     Dates: start: 20030102

REACTIONS (4)
  - BONE DISORDER [None]
  - DENTAL OPERATION [None]
  - OSTEONECROSIS [None]
  - WOUND TREATMENT [None]
